FAERS Safety Report 4740787-1 (Version None)
Quarter: 2005Q3

REPORT INFORMATION
  Report Type: 
  Country: None (occurrence: None)
  Receive Date: 20050729
  Receipt Date: 20050308
  Transmission Date: 20060218
  Serious: Yes (Other)
  Sender: FDA-Public Use
  Company Number: US-2005-003305

PATIENT
  Age: 31 Year
  Sex: Male

DRUGS (4)
  1. MAGNEVIST [Suspect]
     Indication: NUCLEAR MAGNETIC RESONANCE IMAGING BRAIN
     Dosage: 16 ML, 1 DOSE, INTRAVENOUS
     Route: 042
     Dates: start: 20050304, end: 20050304
  2. LEXAPRO [Concomitant]
  3. MOBIC [Concomitant]
  4. AMBIEN [Concomitant]

REACTIONS (5)
  - ANAPHYLACTIC REACTION [None]
  - DYSPNOEA [None]
  - EYE SWELLING [None]
  - FEELING HOT [None]
  - URTICARIA GENERALISED [None]
